FAERS Safety Report 7406757-X (Version None)
Quarter: 2011Q2

REPORT INFORMATION
  Report Type: 
  Country: None (occurrence: None)
  Receive Date: 20110411
  Receipt Date: 20110405
  Transmission Date: 20111010
  Serious: Yes (Other)
  Sender: FDA-Public Use
  Company Number: JP-PFIZER INC-2011034757

PATIENT
  Age: 87 Year
  Sex: Female

DRUGS (4)
  1. RIVOTRIL [Concomitant]
     Dosage: 1.5 MG, 1X/DAY
  2. LYRICA [Suspect]
     Dosage: 75 MG, 1X/DAY
     Route: 048
  3. LYRICA [Suspect]
     Dosage: 25 MG, 1X/DAY
     Route: 048
  4. CODEINE PHOSPHATE [Concomitant]
     Dosage: UNK

REACTIONS (3)
  - TREMOR [None]
  - BLOOD CREATININE INCREASED [None]
  - SOMNOLENCE [None]
